FAERS Safety Report 8119417-7 (Version None)
Quarter: 2012Q1

REPORT INFORMATION
  Report Type: 
  Country: None (occurrence: None)
  Receive Date: 20120203
  Receipt Date: 20120125
  Transmission Date: 20120608
  Serious: Yes (Other)
  Sender: FDA-Public Use
  Company Number: 2012SP004858

PATIENT
  Sex: Female

DRUGS (1)
  1. NUVARING [Suspect]
     Indication: PRODUCT USED FOR UNKNOWN INDICATION

REACTIONS (9)
  - VAGINAL DISCHARGE [None]
  - PREGNANCY TEST FALSE POSITIVE [None]
  - FATIGUE [None]
  - ABDOMINAL PAIN [None]
  - BREAST PAIN [None]
  - NAUSEA [None]
  - BREAST TENDERNESS [None]
  - ABDOMINAL DISTENSION [None]
  - MENSTRUAL DISORDER [None]
